FAERS Safety Report 9708820 (Version 9)
Quarter: 2014Q1

REPORT INFORMATION
  Report Type: Report from Study
  Country: US (occurrence: US)
  Receive Date: 20131125
  Receipt Date: 20140331
  Transmission Date: 20141002
  Serious: Yes (Death, Life-Threatening, Hospitalization)
  Sender: FDA-Public Use
  Company Number: US-009507513-1311USA009003

PATIENT
  Age: 60 Year
  Sex: Male
  Weight: 78.3 kg

DRUGS (3)
  1. MK-7965 [Suspect]
     Indication: PLASMA CELL MYELOMA
     Dosage: 30 MG/M2(ALSO REPORTED 40MG/M2), OVER 2 HOURS ON DAY 1 (C1, CYCLE OF 21 DAYS)
     Route: 042
     Dates: start: 20131114, end: 20131114
  2. BORTEZOMIB [Suspect]
     Indication: PLASMA CELL MYELOMA
     Dosage: C1, CYCLE 21 DAYS, 1 MG/M2(ALSO REPORTED 0.7MG/M2), ON DAYS 1 AND 8
     Route: 058
     Dates: start: 20131114, end: 20131114
  3. DEXAMETHASONE [Suspect]
     Indication: PLASMA CELL MYELOMA
     Dosage: C1, CYCLE 21 DAYS, 20 MG, ON DAYS 1, 2, 8 AND 9
     Route: 048
     Dates: start: 20131114, end: 20131114

REACTIONS (8)
  - Disease progression [Fatal]
  - Anaemia [Not Recovered/Not Resolved]
  - Renal failure acute [Recovered/Resolved with Sequelae]
  - Dyspnoea [Recovered/Resolved with Sequelae]
  - Abdominal pain [Not Recovered/Not Resolved]
  - Haemorrhage intracranial [Not Recovered/Not Resolved]
  - Renal failure acute [Not Recovered/Not Resolved]
  - Aspartate aminotransferase increased [Unknown]
